FAERS Safety Report 5786883-1 (Version None)
Quarter: 2008Q2

REPORT INFORMATION
  Report Type: 
  Country: None (occurrence: None)
  Receive Date: 20080623
  Receipt Date: 20080623
  Transmission Date: 20081010
  Serious: No
  Sender: FDA-Public Use
  Company Number: None

PATIENT

DRUGS (2)
  1. CATAPRES [Suspect]
  2. LIDOCAINE [Suspect]

REACTIONS (1)
  - MEDICATION ERROR [None]
